FAERS Safety Report 8849778 (Version 3)
Quarter: 2012Q4

REPORT INFORMATION
  Report Type: 
  Country: CA (occurrence: CA)
  Receive Date: 20121019
  Receipt Date: 20121030
  Transmission Date: 20130627
  Serious: Yes (Death, Hospitalization)
  Sender: FDA-Public Use
  Company Number: PHHY2012CA093495

PATIENT
  Age: 69 Year
  Sex: Female

DRUGS (1)
  1. SANDOSTATIN LAR [Suspect]
     Indication: SUBILEUS
     Dosage: 20 mg, Once a month
     Route: 030
     Dates: start: 20120918, end: 20121019

REACTIONS (5)
  - Death [Fatal]
  - Lung disorder [Unknown]
  - Pleural effusion [Unknown]
  - Asthenia [Unknown]
  - Ascites [Unknown]
